FAERS Safety Report 24217766 (Version 1)
Quarter: 2024Q3

REPORT INFORMATION
  Report Type: Spontaneous
  Country: US (occurrence: US)
  Receive Date: 20240816
  Receipt Date: 20240816
  Transmission Date: 20241017
  Serious: Yes (Other)
  Sender: SS PHARMA
  Company Number: US-SSPHARMA-2024USSSP00072

PATIENT
  Age: 35 Year
  Sex: Female
  Weight: 67.1 kg

DRUGS (7)
  1. ERGOCALCIFEROL [Suspect]
     Active Substance: ERGOCALCIFEROL
     Indication: Product used for unknown indication
  2. Saccharate [Concomitant]
     Indication: Product used for unknown indication
  3. DEXTROAMPHETAMINE SULFATE [Concomitant]
     Active Substance: DEXTROAMPHETAMINE SULFATE
     Indication: Product used for unknown indication
  4. BRIUMVI [Concomitant]
     Active Substance: UBLITUXIMAB-XIIY
     Indication: Multiple sclerosis
     Dosage: FIRST DOSE
     Route: 042
     Dates: start: 20230727, end: 20230727
  5. BRIUMVI [Concomitant]
     Active Substance: UBLITUXIMAB-XIIY
     Dosage: SECOND DOSE
     Dates: start: 20230812
  6. BRIUMVI [Concomitant]
     Active Substance: UBLITUXIMAB-XIIY
     Route: 042
     Dates: start: 20230818, end: 20230818
  7. ADDERALL [Concomitant]
     Active Substance: AMPHETAMINE ASPARTATE\AMPHETAMINE SULFATE\DEXTROAMPHETAMINE SACCHARATE\DEXTROAMPHETAMINE SULFATE
     Indication: Product used for unknown indication

REACTIONS (4)
  - Haemorrhage [Unknown]
  - Ultrasound foetal abnormal [Unknown]
  - Umbilical cord prolapse [Unknown]
  - Maternal exposure during pregnancy [Unknown]
